FAERS Safety Report 7542213-6 (Version None)
Quarter: 2011Q2

REPORT INFORMATION
  Report Type: 
  Country: None (occurrence: None)
  Receive Date: 20110524
  Receipt Date: 20110308
  Transmission Date: 20111010
  Serious: No
  Sender: FDA-Public Use
  Company Number: 028975

PATIENT
  Sex: Female
  Weight: 68 kg

DRUGS (9)
  1. CANASA [Concomitant]
  2. LOPRESSOR [Concomitant]
  3. CIPRO [Concomitant]
  4. ASACOL [Concomitant]
  5. TRICOR [Concomitant]
  6. PREDNISONE [Concomitant]
  7. FLAGYL [Concomitant]
  8. CIMZIA [Suspect]
     Indication: CROHN'S DISEASE
     Dosage: (400 MG 1X/2 WEEKS SUBCUTANEOUS)
     Route: 058
     Dates: start: 20110225
  9. VYTORIN [Concomitant]

REACTIONS (3)
  - INJECTION SITE PAIN [None]
  - INJECTION SITE PRURITUS [None]
  - INJECTION SITE ERYTHEMA [None]
